FAERS Safety Report 13227995 (Version 2)
Quarter: 2017Q2

REPORT INFORMATION
  Report Type: Report from Study
  Country: US (occurrence: US)
  Receive Date: 20170213
  Receipt Date: 20170405
  Transmission Date: 20170830
  Serious: Yes (Death, Hospitalization)
  Sender: FDA-Public Use
  Company Number: US-ACTELION-A-NJ2017-148496

PATIENT
  Age: 66 Year
  Sex: Male

DRUGS (1)
  1. OPSUMIT [Suspect]
     Active Substance: MACITENTAN
     Indication: PULMONARY HYPERTENSION
     Dosage: 10 MG, QD
     Route: 048
     Dates: start: 20150413, end: 20170204

REACTIONS (5)
  - Wound drainage [Unknown]
  - Cardiac arrest [Fatal]
  - Unresponsive to stimuli [Fatal]
  - Postoperative wound infection [Unknown]
  - Varicose vein [Recovered/Resolved with Sequelae]

NARRATIVE: CASE EVENT DATE: 20161116
